FAERS Safety Report 9396996 (Version 2)
Quarter: 2014Q1

REPORT INFORMATION
  Report Type: Spontaneous
  Country: CA (occurrence: CA)
  Receive Date: 20130712
  Receipt Date: 20140207
  Transmission Date: 20141002
  Serious: Yes (Other)
  Sender: FDA-Public Use
  Company Number: CA-SHIRE-ALL1-2013-04624

PATIENT
  Sex: Male

DRUGS (2)
  1. VYVANSE [Suspect]
     Indication: PRODUCT USED FOR UNKNOWN INDICATION
     Dosage: 30 MG, 1X/DAY:QD
     Route: 048
     Dates: start: 20130612, end: 201306
  2. VYVANSE [Suspect]
     Dosage: 40 MG, UNKNOWN
     Route: 048
     Dates: start: 201306

REACTIONS (3)
  - Loss of consciousness [Unknown]
  - Asthenia [Unknown]
  - Tachycardia [Unknown]
